FAERS Safety Report 6535542-6 (Version None)
Quarter: 2010Q1

REPORT INFORMATION
  Report Type: 
  Country: None (occurrence: None)
  Receive Date: 20100113
  Receipt Date: 20100104
  Transmission Date: 20100710
  Serious: Yes (Hospitalization)
  Sender: FDA-Public Use
  Company Number: FR-ASTRAZENECA-2010SE00128

PATIENT
  Age: 54 Year
  Sex: Male

DRUGS (5)
  1. NEXIUM [Suspect]
     Route: 048
     Dates: start: 20091116, end: 20091118
  2. AUGMENTIN [Suspect]
     Route: 048
     Dates: start: 20091116, end: 20091118
  3. OFLOCET [Suspect]
     Route: 048
     Dates: start: 20091116, end: 20091118
  4. KETOPROFEN [Suspect]
     Route: 048
     Dates: start: 20091116, end: 20091118
  5. DOLIPRANE [Suspect]
     Route: 048
     Dates: start: 20091116, end: 20091118

REACTIONS (1)
  - HAEMOLYTIC ANAEMIA [None]
